FAERS Safety Report 18815959 (Version 1)
Quarter: 2021Q1

REPORT INFORMATION
  Report Type: Spontaneous
  Country: US (occurrence: US)
  Receive Date: 20210201
  Receipt Date: 20210201
  Transmission Date: 20210419
  Serious: Yes (Other)
  Sender: FDA-Public Use
  Company Number: None

PATIENT
  Age: 75 Year
  Sex: Female

DRUGS (1)
  1. DARATUMUMAB AND HYALURANIDASE [Suspect]
     Active Substance: DARATUMUMAB\HYALURONIDASE-FIHJ

REACTIONS (4)
  - Anxiety [None]
  - Blood pressure increased [None]
  - Heart rate increased [None]
  - Dyspnoea [None]

NARRATIVE: CASE EVENT DATE: 20210125
